FAERS Safety Report 7103408-9 (Version None)
Quarter: 2010Q4

REPORT INFORMATION
  Report Type: 
  Country: None (occurrence: None)
  Receive Date: 20101115
  Receipt Date: 20101104
  Transmission Date: 20110411
  Serious: Yes (Hospitalization, Other)
  Sender: FDA-Public Use
  Company Number: SA-BAYER-201045618GPV

PATIENT
  Age: 30 Year
  Sex: Female

DRUGS (2)
  1. CIPROFLOXACIN [Suspect]
     Indication: URINARY TRACT INFECTION
     Dosage: TOTAL DAILY DOSE: 500 MG
     Route: 048
     Dates: start: 19990501, end: 19990101
  2. POTASSIUM CHLORIDE [Concomitant]
     Indication: HYPOKALAEMIA
     Route: 042

REACTIONS (11)
  - ABNORMAL BEHAVIOUR [None]
  - CONFUSIONAL STATE [None]
  - DELIRIUM [None]
  - DISINHIBITION [None]
  - DISORIENTATION [None]
  - ENCEPHALOPATHY [None]
  - HYPERREFLEXIA [None]
  - IRRITABILITY [None]
  - PSYCHOMOTOR HYPERACTIVITY [None]
  - SOMNOLENCE [None]
  - URINARY INCONTINENCE [None]
